FAERS Safety Report 6962771-X (Version None)
Quarter: 2010Q3

REPORT INFORMATION
  Report Type: 
  Country: None (occurrence: None)
  Receive Date: 20100902
  Receipt Date: 20100825
  Transmission Date: 20110219
  Serious: Yes (Other)
  Sender: FDA-Public Use
  Company Number: DE-BRISTOL-MYERS SQUIBB COMPANY-15256464

PATIENT
  Sex: Male
  Weight: 1 kg

DRUGS (3)
  1. REYATAZ [Suspect]
     Route: 064
  2. TRUVADA [Suspect]
     Route: 064
  3. NORVIR [Suspect]
     Route: 064

REACTIONS (2)
  - BRONCHOPULMONARY DYSPLASIA [None]
  - DEVELOPMENTAL DELAY [None]
